FAERS Safety Report 7682863-X (Version None)
Quarter: 2011Q3

REPORT INFORMATION
  Report Type: 
  Country: None (occurrence: None)
  Receive Date: 20110815
  Receipt Date: 20110805
  Transmission Date: 20111222
  Serious: Yes (Hospitalization)
  Sender: FDA-Public Use
  Company Number: JP-ROCHE-792547

PATIENT
  Sex: Female
  Weight: 46 kg

DRUGS (6)
  1. FOLIC ACID [Concomitant]
     Route: 048
     Dates: start: 20091125
  2. ISONIAZID [Concomitant]
     Route: 048
     Dates: start: 20100105, end: 20101026
  3. RHEUMATREX [Concomitant]
     Route: 048
     Dates: start: 20090811, end: 20101026
  4. ISONIAZID [Concomitant]
     Route: 048
     Dates: start: 20101125
  5. ACTEMRA [Suspect]
     Indication: RHEUMATOID ARTHRITIS
     Dosage: DOSAGE IS UNCERTAIN
     Route: 041
     Dates: start: 20101012, end: 20101012
  6. RHEUMATREX [Concomitant]
     Route: 048
     Dates: start: 20101116

REACTIONS (1)
  - LIVER DISORDER [None]
